FAERS Safety Report 7328046-4 (Version None)
Quarter: 2011Q1

REPORT INFORMATION
  Report Type: 
  Country: None (occurrence: None)
  Receive Date: 20110303
  Receipt Date: 20110223
  Transmission Date: 20110831
  Serious: Yes (Hospitalization)
  Sender: FDA-Public Use
  Company Number: JP-ASTELLAS-2011JP001396

PATIENT
  Age: 47 Year
  Sex: Female

DRUGS (5)
  1. PREDONINE [Concomitant]
     Dosage: 5 MG, UNKNOWN/D
     Route: 065
     Dates: start: 20100901, end: 20110222
  2. VOLTAREN [Concomitant]
     Route: 065
  3. PROGRAF [Suspect]
     Indication: RHEUMATOID ARTHRITIS
     Dosage: 0.5 MG, UNKNOWN/D
     Route: 048
  4. FAMOTIDINE [Concomitant]
     Route: 065
  5. ONEALFA [Concomitant]
     Route: 065

REACTIONS (1)
  - TRANSIENT ISCHAEMIC ATTACK [None]
